FAERS Safety Report 4583418-6 (Version None)
Quarter: 2005Q1

REPORT INFORMATION
  Report Type: 
  Country: None (occurrence: None)
  Receive Date: 20050211
  Receipt Date: 20050201
  Transmission Date: 20050727
  Serious: Yes (Hospitalization)
  Sender: FDA-Public Use
  Company Number: 2005024073

PATIENT
  Age: 83 Year
  Sex: Male

DRUGS (5)
  1. LIPITOR [Suspect]
     Indication: DYSLIPIDAEMIA
     Dosage: 10 MG (10 MG, 1 IN 1 D), ORAL
     Route: 048
     Dates: start: 20020801, end: 20050101
  2. GLIMEPIRIDE [Concomitant]
  3. FUROSEMIDE [Concomitant]
  4. DIAZEPAM [Concomitant]
  5. LOSARTAN (LOSARTAN) [Concomitant]

REACTIONS (2)
  - ANGIOPLASTY [None]
  - STENT PLACEMENT [None]
